FAERS Safety Report 14717575 (Version 2)
Quarter: 2018Q2

REPORT INFORMATION
  Report Type: Spontaneous
  Country: US (occurrence: US)
  Receive Date: 20180404
  Receipt Date: 20180405
  Transmission Date: 20180711
  Serious: Yes (Other)
  Sender: FDA-Public Use
  Company Number: US-SA-2018SA014065

PATIENT
  Age: 68 Year
  Sex: Female

DRUGS (1)
  1. DUPIXENT [Suspect]
     Active Substance: DUPILUMAB
     Indication: DERMATITIS ATOPIC
     Route: 058
     Dates: start: 201706, end: 20180315

REACTIONS (6)
  - Dry skin [Unknown]
  - Ill-defined disorder [Unknown]
  - Dermatitis [Recovered/Resolved]
  - Ligament sprain [Unknown]
  - Intentional product misuse [Unknown]
  - Hernia repair [Recovering/Resolving]

NARRATIVE: CASE EVENT DATE: 201803
